FAERS Safety Report 7778114-8 (Version None)
Quarter: 2011Q3

REPORT INFORMATION
  Report Type: 
  Country: None (occurrence: None)
  Receive Date: 20110926
  Receipt Date: 20110923
  Transmission Date: 20111222
  Serious: Yes (Life-Threatening, Hospitalization)
  Sender: FDA-Public Use
  Company Number: FI-SANOFI-AVENTIS-2011SA062133

PATIENT
  Age: 69 Year
  Sex: Female

DRUGS (3)
  1. ENOXAPARIN SODIUM [Suspect]
     Indication: ACUTE MYOCARDIAL INFARCTION
     Route: 058
     Dates: start: 20110913, end: 20110914
  2. WARFARIN SODIUM [Concomitant]
     Indication: ATRIAL FIBRILLATION
     Route: 048
  3. PRIMASPAN [Concomitant]
     Indication: ACUTE MYOCARDIAL INFARCTION
     Route: 048

REACTIONS (2)
  - ABDOMINAL COMPARTMENT SYNDROME [None]
  - MUSCLE HAEMORRHAGE [None]
